FAERS Safety Report 12877844 (Version 1)
Quarter: 2016Q4

REPORT INFORMATION
  Report Type: Spontaneous
  Country: US (occurrence: US)
  Receive Date: 20161024
  Receipt Date: 20161024
  Transmission Date: 20170207
  Serious: Yes (Hospitalization)
  Sender: FDA-Public Use
  Company Number: US-RARE DISEASE THERAPEUTICS, INC.-1058687

PATIENT
  Age: 14 Year
  Sex: Female
  Weight: 34.9 kg

DRUGS (2)
  1. CYSTADANE [Suspect]
     Active Substance: BETAINE
     Indication: HOMOCYSTINURIA
     Dates: start: 20141230, end: 20160803
  2. HCU COOLERS [Concomitant]

REACTIONS (2)
  - Surgery [Unknown]
  - Overdose [None]

NARRATIVE: CASE EVENT DATE: 20160804
